FAERS Safety Report 23385144 (Version 1)
Quarter: 2024Q1

REPORT INFORMATION
  Report Type: Spontaneous
  Country: US (occurrence: US)
  Receive Date: 20240110
  Receipt Date: 20240110
  Transmission Date: 20240410
  Serious: No
  Sender: FDA-Public Use
  Company Number: US-ABBVIE-5574717

PATIENT
  Age: 41 Year
  Sex: Male

DRUGS (3)
  1. HUMIRA [Suspect]
     Active Substance: ADALIMUMAB
     Indication: Ankylosing spondylitis
     Dosage: FORM STRENGTH: 40 MILLIGRAM
     Route: 058
  2. HUMIRA [Suspect]
     Active Substance: ADALIMUMAB
     Indication: Rheumatoid arthritis
  3. HUMIRA [Suspect]
     Active Substance: ADALIMUMAB
     Indication: Sarcoidosis

REACTIONS (3)
  - Off label use [Unknown]
  - Device issue [Not Recovered/Not Resolved]
  - Device difficult to use [Not Recovered/Not Resolved]

NARRATIVE: CASE EVENT DATE: 20240103
